FAERS Safety Report 8009911-1 (Version None)
Quarter: 2011Q4

REPORT INFORMATION
  Report Type: 
  Country: None (occurrence: None)
  Receive Date: 20111228
  Receipt Date: 20111222
  Transmission Date: 20120403
  Serious: Yes (Other)
  Sender: FDA-Public Use
  Company Number: IT-ELI_LILLY_AND_COMPANY-IT201112004061

PATIENT
  Sex: Female

DRUGS (6)
  1. HUMALOG MIX 75/25 [Suspect]
     Indication: DIABETES MELLITUS
     Dosage: 22 IU, QD
     Route: 058
     Dates: start: 20110101, end: 20111118
  2. TICLOPIDINE HCL [Concomitant]
     Dosage: UNK
  3. HUMALOG MIX 75/25 [Suspect]
     Dosage: 10 IU, EACH EVENING
     Route: 058
     Dates: start: 20111119
  4. METOPROLOL SUCCINATE [Concomitant]
     Dosage: UNK
  5. ATORVASTATIN [Concomitant]
     Dosage: UNK
  6. HUMALOG MIX 75/25 [Suspect]
     Dosage: 8 IU, EACH MORNING
     Route: 058
     Dates: start: 20111119

REACTIONS (3)
  - HYPOPHAGIA [None]
  - HYPERHIDROSIS [None]
  - HYPOGLYCAEMIA [None]
